FAERS Safety Report 25573876 (Version 4)
Quarter: 2025Q3

REPORT INFORMATION
  Report Type: Report from Study
  Country: US (occurrence: US)
  Receive Date: 20250717
  Receipt Date: 20250922
  Transmission Date: 20251021
  Serious: No
  Sender: MALLINCKRODT
  Company Number: US-MALLINCKRODT-MNK202504365

PATIENT
  Sex: Female

DRUGS (2)
  1. CORTICOTROPIN [Suspect]
     Active Substance: CORTICOTROPIN
     Indication: Rheumatoid arthritis
     Route: 058
  2. CORTICOTROPIN [Suspect]
     Active Substance: CORTICOTROPIN

REACTIONS (10)
  - Weight loss poor [Not Recovered/Not Resolved]
  - Back pain [Unknown]
  - Dyspnoea [Unknown]
  - Frustration tolerance decreased [Unknown]
  - Illness [Unknown]
  - Peripheral swelling [Recovering/Resolving]
  - Blood pressure increased [Unknown]
  - Swelling face [Unknown]
  - Insomnia [Not Recovered/Not Resolved]
  - Injection site bruising [Not Recovered/Not Resolved]
